FAERS Safety Report 18233379 (Version 2)
Quarter: 2020Q3

REPORT INFORMATION
  Report Type: Spontaneous
  Country: CN (occurrence: CN)
  Receive Date: 20200904
  Receipt Date: 20200910
  Transmission Date: 20201103
  Serious: Yes (Death)
  Sender: FDA-Public Use
  Company Number: CN-ROCHE-2671810

PATIENT
  Age: 2 Month
  Sex: Female

DRUGS (2)
  1. CEFOPERAZONE [Concomitant]
     Active Substance: CEFOPERAZONE
     Indication: PRODUCT USED FOR UNKNOWN INDICATION
     Route: 065
  2. RANIBIZUMAB. [Suspect]
     Active Substance: RANIBIZUMAB
     Indication: RETINOPATHY OF PREMATURITY
     Route: 031
     Dates: start: 20200827

REACTIONS (4)
  - Swelling of eyelid [Unknown]
  - Pyrexia [Fatal]
  - Prescribed overdose [Fatal]
  - Crying [Unknown]

NARRATIVE: CASE EVENT DATE: 20200827
